FAERS Safety Report 7792111-8 (Version None)
Quarter: 2011Q4

REPORT INFORMATION
  Report Type: 
  Country: None (occurrence: None)
  Receive Date: 20111003
  Receipt Date: 20110916
  Transmission Date: 20120403
  Serious: Yes (Death, Other)
  Sender: FDA-Public Use
  Company Number: US-AMGEN-US342709

PATIENT
  Age: 12 Year
  Sex: Male

DRUGS (4)
  1. IMMUNOGLOBULINS [Concomitant]
     Dosage: UNK UNK, UNK
     Route: 042
  2. CORTICOSTEROID NOS [Concomitant]
     Dosage: UNK UNK, UNK
     Route: 065
  3. NPLATE [Suspect]
     Indication: PLATELET COUNT DECREASED
     Dosage: 7 MUG/KG, UNK
     Route: 065
     Dates: start: 20090408, end: 20090501
  4. NPLATE [Suspect]
     Dates: start: 20090409

REACTIONS (4)
  - SCLERODERMA [None]
  - DRUG INEFFECTIVE [None]
  - GRAFT VERSUS HOST DISEASE [None]
  - THROMBOCYTOPENIA [None]
